FAERS Safety Report 20984504 (Version 1)
Quarter: 2022Q2

REPORT INFORMATION
  Report Type: Spontaneous
  Country: US (occurrence: None)
  Receive Date: 20220621
  Receipt Date: 20220621
  Transmission Date: 20220721
  Serious: No
  Sender: FDA-Public Use
  Company Number: US-ROCHE-2839194

PATIENT
  Age: 51 Year
  Sex: Female

DRUGS (13)
  1. XELODA [Suspect]
     Active Substance: CAPECITABINE
     Indication: Invasive ductal breast carcinoma
     Route: 048
     Dates: start: 202105
  2. CYCLOPHOSPHAMIDE [Concomitant]
     Active Substance: CYCLOPHOSPHAMIDE
     Dates: start: 20201002, end: 20201217
  3. DOXORUBICIN [Concomitant]
     Active Substance: DOXORUBICIN
     Dates: start: 20201002, end: 20201217
  4. SODIUM CHLORIDE [Concomitant]
     Active Substance: SODIUM CHLORIDE
  5. TYLENOL [Concomitant]
     Active Substance: ACETAMINOPHEN
  6. FLEXERIL [Concomitant]
     Active Substance: CYCLOBENZAPRINE HYDROCHLORIDE
  7. ERGOCALCIFEROL [Concomitant]
     Active Substance: ERGOCALCIFEROL
     Route: 048
  8. LEXAPRO [Concomitant]
     Active Substance: ESCITALOPRAM OXALATE
  9. IBUPROFEN [Concomitant]
     Active Substance: IBUPROFEN
  10. LORAZEPAM [Concomitant]
     Active Substance: LORAZEPAM
  11. ONDANSETRON [Concomitant]
     Active Substance: ONDANSETRON
  12. PANTOPRAZOLE [Concomitant]
     Active Substance: PANTOPRAZOLE
  13. TRAMADOL [Concomitant]
     Active Substance: TRAMADOL

REACTIONS (3)
  - Fatigue [Unknown]
  - Treatment noncompliance [Unknown]
  - Unevaluable event [Unknown]

NARRATIVE: CASE EVENT DATE: 20210520
